FAERS Safety Report 25985803 (Version 1)
Quarter: 2025Q4

REPORT INFORMATION
  Report Type: Spontaneous
  Country: GB (occurrence: GB)
  Receive Date: 20251031
  Receipt Date: 20251031
  Transmission Date: 20260119
  Serious: Yes (Death, Other)
  Sender: ADVANZ PHARMA
  Company Number: GB-MHRA-37350174

PATIENT

DRUGS (1)
  1. PREDNISOLONE [Suspect]
     Active Substance: PREDNISOLONE
     Indication: Muscular weakness
     Dosage: 60 MG, QD
     Route: 065

REACTIONS (3)
  - Completed suicide [Fatal]
  - Mania [Not Recovered/Not Resolved]
  - Pneumonia [Not Recovered/Not Resolved]
